FAERS Safety Report 6323932-6 (Version None)
Quarter: 2009Q3

REPORT INFORMATION
  Report Type: 
  Country: None (occurrence: None)
  Receive Date: 20090824
  Receipt Date: 20090817
  Transmission Date: 20100115
  Serious: Yes (Hospitalization, Congenital Anomaly)
  Sender: FDA-Public Use
  Company Number: A0751154A

PATIENT
  Sex: Male

DRUGS (4)
  1. PAXIL [Suspect]
     Indication: DEPRESSION
     Dates: start: 20000701, end: 20070101
  2. MACROBID [Suspect]
  3. PHENAZOPYRIDINE HCL TAB [Suspect]
  4. VITAMIN AND MINERAL PRENATAL SUPPLEMENT W/ FOLIC ACID CAP [Concomitant]

REACTIONS (9)
  - ATRIAL SEPTAL DEFECT [None]
  - CONVULSION [None]
  - CRANIOSYNOSTOSIS [None]
  - DRUG EXPOSURE DURING PREGNANCY [None]
  - FEEDING DISORDER NEONATAL [None]
  - HEART DISEASE CONGENITAL [None]
  - HERNIA CONGENITAL [None]
  - PILONIDAL CYST CONGENITAL [None]
  - PULMONARY MALFORMATION [None]
